FAERS Safety Report 17726989 (Version 1)
Quarter: 2020Q2

REPORT INFORMATION
  Report Type: Spontaneous
  Country: GB (occurrence: GB)
  Receive Date: 20200430
  Receipt Date: 20200430
  Transmission Date: 20200714
  Serious: Yes (Other)
  Sender: FDA-Public Use
  Company Number: GB-ALKEM LABORATORIES LIMITED-GB-ALKEM-2020-01397

PATIENT
  Age: 42 Year
  Sex: Female

DRUGS (4)
  1. QUETIAPINE FUMARATE. [Suspect]
     Active Substance: QUETIAPINE FUMARATE
     Indication: PSYCHOTIC DISORDER
     Dosage: 650 MILLIGRAM
     Route: 065
  2. THYROXINE [Concomitant]
     Active Substance: LEVOTHYROXINE
     Indication: PRODUCT USED FOR UNKNOWN INDICATION
     Dosage: UNK
     Route: 065
  3. LITHIUM. [Suspect]
     Active Substance: LITHIUM
     Indication: PSYCHOTIC DISORDER
     Dosage: 1000 MILLIGRAM
     Route: 065
  4. SERTRALINE [Suspect]
     Active Substance: SERTRALINE HYDROCHLORIDE
     Indication: ANTIDEPRESSANT THERAPY
     Dosage: 100 MILLIGRAM
     Route: 065

REACTIONS (7)
  - Myoclonus [Not Recovered/Not Resolved]
  - Tremor [Unknown]
  - Disability [Unknown]
  - Ataxia [Unknown]
  - Action tremor [Unknown]
  - Postural tremor [Unknown]
  - Dyskinesia [Unknown]
